FAERS Safety Report 24301671 (Version 3)
Quarter: 2024Q4

REPORT INFORMATION
  Report Type: Spontaneous
  Country: JP (occurrence: JP)
  Receive Date: 20240910
  Receipt Date: 20241123
  Transmission Date: 20250114
  Serious: Yes (Death, Other)
  Sender: UNITED THERAPEUTICS
  Company Number: JP-UNITED THERAPEUTICS-UNT-2024-008545

PATIENT
  Age: 77 Year
  Sex: Male

DRUGS (2)
  1. TYVASO [Suspect]
     Active Substance: TREPROSTINIL
     Indication: Chronic obstructive pulmonary disease
     Dosage: UNK, Q8H
     Dates: start: 20240315, end: 2024
  2. TYVASO [Suspect]
     Active Substance: TREPROSTINIL
     Indication: Pulmonary arterial hypertension

REACTIONS (3)
  - Chronic obstructive pulmonary disease [Fatal]
  - Pulmonary embolism [Fatal]
  - Off label use [Unknown]

NARRATIVE: CASE EVENT DATE: 20240315
